FAERS Safety Report 21127722 (Version 1)
Quarter: 2022Q3

REPORT INFORMATION
  Report Type: Spontaneous
  Country: US (occurrence: US)
  Receive Date: 20220725
  Receipt Date: 20220725
  Transmission Date: 20221026
  Serious: No
  Sender: FDA-Public Use
  Company Number: US-ABBVIE-22K-163-4260867-00

PATIENT
  Sex: Female

DRUGS (3)
  1. SYNTHROID [Suspect]
     Active Substance: LEVOTHYROXINE SODIUM
     Indication: Product used for unknown indication
     Route: 048
  2. CYTOMEL [Suspect]
     Active Substance: LIOTHYRONINE SODIUM
     Indication: Product used for unknown indication
     Dosage: CUT CYTOMEL 25 MICROGRAM IN HALF AND TAKE HALF EACH DAY FOR 35 YEARS
     Route: 065
  3. CYTOMEL [Suspect]
     Active Substance: LIOTHYRONINE SODIUM
     Route: 065

REACTIONS (3)
  - Intentional product misuse [Unknown]
  - Alopecia [Unknown]
  - Drug ineffective [Unknown]
